FAERS Safety Report 5581274-0 (Version None)
Quarter: 2008Q1

REPORT INFORMATION
  Report Type: 
  Country: None (occurrence: None)
  Receive Date: 20080104
  Receipt Date: 20071227
  Transmission Date: 20080703
  Serious: Yes (Hospitalization)
  Sender: FDA-Public Use
  Company Number: BE-JNJFOC-20071109557

PATIENT
  Sex: Male

DRUGS (3)
  1. REMICADE [Suspect]
     Indication: CROHN'S DISEASE
     Dosage: FIRST INFUSION
     Route: 042
  2. CORTICOSTEROID [Concomitant]
     Indication: CROHN'S DISEASE
  3. IMURAN [Concomitant]
     Indication: CROHN'S DISEASE

REACTIONS (4)
  - HYPOKALAEMIA [None]
  - HYPOPROTEINAEMIA [None]
  - OEDEMA [None]
  - VASCULAR SKIN DISORDER [None]
